FAERS Safety Report 11211326 (Version 1)
Quarter: 2015Q2

REPORT INFORMATION
  Report Type: Spontaneous
  Country: None (occurrence: None)
  Receive Date: 20150619
  Receipt Date: 20150619
  Transmission Date: 20150821
  Serious: Yes (Other)
  Sender: FDA-Public Use
  Company Number: None

PATIENT
  Age: 54 Year
  Sex: Female
  Weight: 107.96 kg

DRUGS (14)
  1. BUPROPRION HCL SR 100 MG [Suspect]
     Active Substance: BUPROPION HYDROCHLORIDE
     Indication: ANXIETY
     Route: 048
  2. CETIRIZINE HYDROCHLORIDE. [Concomitant]
     Active Substance: CETIRIZINE HYDROCHLORIDE
  3. ACETIMETOPHINE [Concomitant]
  4. ALPRAZOLAM. [Concomitant]
     Active Substance: ALPRAZOLAM
  5. LOSARTAN [Concomitant]
     Active Substance: LOSARTAN
  6. BUPROPRION HCL SR 100 MG [Suspect]
     Active Substance: BUPROPION HYDROCHLORIDE
     Indication: DEPRESSION
     Route: 048
  7. OMEPRAZOLE. [Concomitant]
     Active Substance: OMEPRAZOLE
  8. FLOVENT HFA [Suspect]
     Active Substance: FLUTICASONE PROPIONATE
  9. HYDROCODONE [Concomitant]
     Active Substance: HYDROCODONE
  10. BUPROPRION HCL SR [Concomitant]
  11. PROAIR HFA [Concomitant]
     Active Substance: ALBUTEROL SULFATE
  12. FLUTICASONE PROPIONATE. [Concomitant]
     Active Substance: FLUTICASONE PROPIONATE
  13. METHOTREXATE [Concomitant]
     Active Substance: METHOTREXATE
  14. HYDROXYCHLOROQUINE [Concomitant]
     Active Substance: HYDROXYCHLOROQUINE

REACTIONS (5)
  - Anxiety [None]
  - Nightmare [None]
  - Suicidal ideation [None]
  - Anger [None]
  - Aggression [None]
